FAERS Safety Report 4915142-1 (Version None)
Quarter: 2006Q1

REPORT INFORMATION
  Report Type: 
  Country: None (occurrence: None)
  Receive Date: 20060217
  Receipt Date: 20060210
  Transmission Date: 20060701
  Serious: Yes (Other)
  Sender: FDA-Public Use
  Company Number: 2006AP00753

PATIENT
  Age: 23872 Day
  Sex: Male
  Weight: 67 kg

DRUGS (4)
  1. CRESTOR [Suspect]
     Indication: HYPERCHOLESTEROLAEMIA
     Route: 048
     Dates: start: 20060104, end: 20060120
  2. HALCION [Concomitant]
     Indication: INSOMNIA
     Route: 048
     Dates: start: 20040121
  3. LIPOVAS [Concomitant]
     Dosage: PAST HISTORY
  4. BEZATOL SR [Concomitant]
     Dosage: PAST HISTORY

REACTIONS (2)
  - HYPOAESTHESIA [None]
  - MYALGIA [None]
